FAERS Safety Report 22089757 (Version 3)
Quarter: 2023Q1

REPORT INFORMATION
  Report Type: Spontaneous
  Country: DE (occurrence: DE)
  Receive Date: 20230313
  Receipt Date: 20230329
  Transmission Date: 20230418
  Serious: Yes (Life-Threatening, Other)
  Sender: FDA-Public Use
  Company Number: None

PATIENT
  Age: 46 Year
  Sex: Male
  Weight: 75 kg

DRUGS (1)
  1. ARTICAINE HYDROCHLORIDE\EPINEPHRINE BITARTRATE [Suspect]
     Active Substance: ARTICAINE HYDROCHLORIDE\EPINEPHRINE BITARTRATE
     Indication: Dental care
     Dosage: 0,7 ML
     Route: 004
     Dates: start: 20230302, end: 20230302

REACTIONS (7)
  - Cardiac fibrillation [Recovered/Resolved]
  - Circulatory collapse [Recovered/Resolved with Sequelae]
  - Syncope [Recovered/Resolved]
  - Cold sweat [Recovered/Resolved with Sequelae]
  - Fatigue [Recovered/Resolved with Sequelae]
  - Tachycardia [Recovered/Resolved with Sequelae]
  - Product lot number issue [Unknown]

NARRATIVE: CASE EVENT DATE: 20230302
